FAERS Safety Report 4863039-8 (Version None)
Quarter: 2005Q4

REPORT INFORMATION
  Report Type: 
  Country: None (occurrence: None)
  Receive Date: 20051221
  Receipt Date: 20050711
  Transmission Date: 20060501
  Serious: Yes (Hospitalization, Other)
  Sender: FDA-Public Use
  Company Number: US-MERCK-0507USA01468

PATIENT
  Age: 43 Year
  Sex: Male
  Weight: 93 kg

DRUGS (1)
  1. VIOXX [Suspect]
     Route: 048
     Dates: start: 19990701, end: 20030101

REACTIONS (20)
  - ACUTE MYOCARDIAL INFARCTION [None]
  - ANGINA UNSTABLE [None]
  - ARTHROPATHY [None]
  - BRONCHOSPASM [None]
  - CARDIAC ARREST [None]
  - CARDIAC DISORDER [None]
  - CHEST PAIN [None]
  - CORONARY ARTERY STENOSIS [None]
  - CORONARY ARTERY THROMBOSIS [None]
  - GASTROOESOPHAGEAL REFLUX DISEASE [None]
  - HIATUS HERNIA [None]
  - HYPERTENSION [None]
  - KNEE OPERATION [None]
  - NON-CARDIAC CHEST PAIN [None]
  - OESOPHAGEAL DISORDER [None]
  - OESOPHAGEAL ULCER [None]
  - OESOPHAGITIS [None]
  - OESOPHAGITIS ULCERATIVE [None]
  - SPINAL LAMINECTOMY [None]
  - VENTRICULAR HYPOKINESIA [None]
